FAERS Safety Report 19447663 (Version 1)
Quarter: 2021Q2

REPORT INFORMATION
  Report Type: Spontaneous
  Country: US (occurrence: US)
  Receive Date: 20210622
  Receipt Date: 20210622
  Transmission Date: 20210717
  Serious: Yes (Hospitalization)
  Sender: FDA-Public Use
  Company Number: None

PATIENT
  Age: 91 Year
  Sex: Female

DRUGS (16)
  1. ISOSORBIDE. [Concomitant]
     Active Substance: ISOSORBIDE
  2. NITROFURANTOIN. [Concomitant]
     Active Substance: NITROFURANTOIN
  3. MONTELUKAST [Concomitant]
     Active Substance: MONTELUKAST SODIUM
  4. BUMETANIDE. [Concomitant]
     Active Substance: BUMETANIDE
  5. PRADAXA [Concomitant]
     Active Substance: DABIGATRAN ETEXILATE MESYLATE
  6. ALBUTEROL. [Concomitant]
     Active Substance: ALBUTEROL
  7. SPIRONOLACTONE. [Concomitant]
     Active Substance: SPIRONOLACTONE
  8. ASMANEX [Concomitant]
     Active Substance: MOMETASONE FUROATE
  9. SAMSCA [Suspect]
     Active Substance: TOLVAPTAN
     Indication: ESSENTIAL HYPERTENSION
     Route: 048
     Dates: start: 20210326
  10. PREVIDENT [Concomitant]
     Active Substance: SODIUM FLUORIDE
  11. RESTASIS [Concomitant]
     Active Substance: CYCLOSPORINE
  12. PRIMADONE [Concomitant]
     Active Substance: PRIMIDONE
  13. LABETALOL [Concomitant]
     Active Substance: LABETALOL\LABETALOL HYDROCHLORIDE
  14. FOLIC ACID. [Concomitant]
     Active Substance: FOLIC ACID
  15. SPIRIVA [Concomitant]
     Active Substance: TIOTROPIUM BROMIDE MONOHYDRATE
  16. OLOPATADINE. [Concomitant]
     Active Substance: OLOPATADINE

REACTIONS (2)
  - Cardiac failure congestive [None]
  - Sepsis [None]

NARRATIVE: CASE EVENT DATE: 20210622
